FAERS Safety Report 25914242 (Version 1)
Quarter: 2025Q4

REPORT INFORMATION
  Report Type: Report from Study
  Country: US (occurrence: US)
  Receive Date: 20251013
  Receipt Date: 20251013
  Transmission Date: 20260119
  Serious: Yes (Disabling)
  Sender: GILEAD
  Company Number: US-GILEAD-2025-0731246

PATIENT
  Sex: Male

DRUGS (8)
  1. EMTRICITABINE\TENOFOVIR [Suspect]
     Active Substance: EMTRICITABINE\TENOFOVIR
     Indication: HIV infection
     Dosage: 200/25
     Route: 065
  2. BETA VULGARIS (BEET) ROOT EXTRACT [Suspect]
     Active Substance: BEET
     Indication: Product used for unknown indication
     Dosage: UNK UNK, QD
     Route: 065
  3. FLAXSEED [Suspect]
     Active Substance: FLAX SEED
     Indication: Product used for unknown indication
     Dosage: UNK UNK, QD
     Route: 065
  4. HERBALS [Suspect]
     Active Substance: HERBALS
     Indication: Product used for unknown indication
     Dosage: DAILY
     Route: 065
  5. IODINE [Suspect]
     Active Substance: IODINE
     Indication: Product used for unknown indication
     Dosage: DAILY
     Route: 065
  6. PHYTOSTEROLS [Suspect]
     Active Substance: PHYTOSTEROLS
     Indication: Product used for unknown indication
     Dosage: DAILY
     Route: 065
  7. HERBALS\SAW PALMETTO [Suspect]
     Active Substance: HERBALS\SAW PALMETTO
     Indication: Product used for unknown indication
     Dosage: DAILY
     Route: 065
  8. ZINC [Suspect]
     Active Substance: ZINC
     Indication: Product used for unknown indication
     Dosage: DAILY
     Route: 065

REACTIONS (1)
  - Hypertension [Recovering/Resolving]
